FAERS Safety Report 13101902 (Version 2)
Quarter: 2017Q1

REPORT INFORMATION
  Report Type: Spontaneous
  Country: BR (occurrence: BR)
  Receive Date: 20170110
  Receipt Date: 20170118
  Transmission Date: 20170428
  Serious: Yes (Hospitalization)
  Sender: FDA-Public Use
  Company Number: BR-JNJFOC-20170104620

PATIENT

DRUGS (1)
  1. DUROGESIC D-TRANS [Suspect]
     Active Substance: FENTANYL
     Indication: UNEVALUABLE EVENT
     Route: 062

REACTIONS (3)
  - Pain [Unknown]
  - Underdose [Unknown]
  - Product quality issue [Unknown]
